FAERS Safety Report 12741861 (Version 1)
Quarter: 2016Q3

REPORT INFORMATION
  Report Type: Spontaneous
  Country: US (occurrence: US)
  Receive Date: 20160913
  Receipt Date: 20160913
  Transmission Date: 20161109
  Serious: Yes (Other)
  Sender: FDA-Public Use
  Company Number: None

PATIENT
  Age: 71 Year
  Sex: Male
  Weight: 94.5 kg

DRUGS (10)
  1. ALLEGRA ALLERGY 24 (FEXOFENADINE HCL) [Concomitant]
  2. TYLENOL 8HR ARTHRITIS [Concomitant]
  3. METHOTREXATE. [Suspect]
     Active Substance: METHOTREXATE
     Indication: SARCOIDOSIS
     Dosage: OTHER STRENGTH:;OTHER DOSE:;OTHER FREQUENCY:WEEKLY;OTHER ROUTE:
     Route: 048
     Dates: start: 20160529, end: 20160828
  4. FOLIC ACID. [Concomitant]
     Active Substance: FOLIC ACID
  5. SOTALOL. [Concomitant]
     Active Substance: SOTALOL
  6. ICD [Concomitant]
  7. MELATONIN [Concomitant]
     Active Substance: MELATONIN
  8. ALLOPURINOL. [Concomitant]
     Active Substance: ALLOPURINOL
  9. RANITIDINE (ZANTAC) [Concomitant]
  10. SHAKLEE VITALIZER OGLD WITH VITAMIN K [Concomitant]

REACTIONS (9)
  - Sputum increased [None]
  - Oropharyngeal pain [None]
  - Cough [None]
  - Productive cough [None]
  - Odynophagia [None]
  - Laryngitis [None]
  - Pharyngeal oedema [None]
  - Dysphagia [None]
  - Sputum discoloured [None]

NARRATIVE: CASE EVENT DATE: 20160830
